FAERS Safety Report 13404233 (Version 1)
Quarter: 2017Q2

REPORT INFORMATION
  Report Type: Spontaneous
  Country: US (occurrence: US)
  Receive Date: 20170405
  Receipt Date: 20170405
  Transmission Date: 20170830
  Serious: No
  Sender: FDA-Public Use
  Company Number: US-ASTRAZENECA-2017SE32350

PATIENT
  Sex: Female
  Weight: 47.6 kg

DRUGS (2)
  1. ZOLADEX [Suspect]
     Active Substance: GOSERELIN ACETATE
     Indication: BREAST CANCER STAGE III
     Route: 058
     Dates: start: 201605
  2. ANASTROZOLE. [Suspect]
     Active Substance: ANASTROZOLE
     Indication: BREAST CANCER STAGE III
     Route: 048
     Dates: start: 201607

REACTIONS (4)
  - Decreased appetite [Unknown]
  - Hot flush [Unknown]
  - Needle track marks [Unknown]
  - Weight decreased [Unknown]
